FAERS Safety Report 4435448-2 (Version None)
Quarter: 2004Q3

REPORT INFORMATION
  Report Type: 
  Country: None (occurrence: None)
  Receive Date: 20040826
  Receipt Date: 20040816
  Transmission Date: 20050211
  Serious: Yes (Hospitalization)
  Sender: FDA-Public Use
  Company Number: A-CH2004-07106

PATIENT
  Age: 4 Year
  Sex: Female

DRUGS (2)
  1. TRACLEER [Suspect]
     Indication: PULMONARY HYPERTENSION
     Dosage: 31.25 MG, BID, ORAL
     Route: 048
     Dates: start: 20020920
  2. TRACLEER [Suspect]
     Dosage: UNK MG, ORAL
     Route: 048
     Dates: start: 20020401, end: 20020919

REACTIONS (7)
  - CATHETER RELATED INFECTION [None]
  - DRUG INEFFECTIVE [None]
  - DRUG INTOLERANCE [None]
  - EPISTAXIS [None]
  - IDIOPATHIC THROMBOCYTOPENIC PURPURA [None]
  - PULMONARY HYPERTENSION [None]
  - SYNCOPE [None]
